FAERS Safety Report 8188939-5 (Version None)
Quarter: 2012Q1

REPORT INFORMATION
  Report Type: 
  Country: None (occurrence: None)
  Receive Date: 20120306
  Receipt Date: 20120301
  Transmission Date: 20120608
  Serious: Yes (Life-Threatening, Hospitalization)
  Sender: FDA-Public Use
  Company Number: US-VERTEX PHARMACEUTICALS INC.-AE-2012-002907

PATIENT
  Sex: Male

DRUGS (3)
  1. RIBAVIRIN [Concomitant]
     Indication: HEPATITIS C
     Dates: start: 20120123, end: 20120124
  2. INCIVEK [Suspect]
     Indication: HEPATITIS C
     Route: 048
     Dates: start: 20120123, end: 20120124
  3. PEGASYS [Concomitant]
     Indication: HEPATITIS C
     Dates: start: 20120123, end: 20120124

REACTIONS (4)
  - PYREXIA [None]
  - RECTAL HAEMORRHAGE [None]
  - BLOOD BLISTER [None]
  - VOMITING [None]
